FAERS Safety Report 13873070 (Version 2)
Quarter: 2017Q3

REPORT INFORMATION
  Report Type: Spontaneous
  Country: IN (occurrence: IN)
  Receive Date: 20170816
  Receipt Date: 20170914
  Transmission Date: 20171127
  Serious: Yes (Disabling)
  Sender: FDA-Public Use
  Company Number: IN-ROCHE-1978968

PATIENT
  Age: 54 Year
  Sex: Male

DRUGS (1)
  1. ACTILYSE [Suspect]
     Active Substance: ALTEPLASE
     Indication: ISCHAEMIC STROKE
     Route: 042

REACTIONS (2)
  - Thrombotic stroke [Not Recovered/Not Resolved]
  - Intracranial venous sinus thrombosis [Not Recovered/Not Resolved]
